FAERS Safety Report 7950097-7 (Version None)
Quarter: 2011Q4

REPORT INFORMATION
  Report Type: 
  Country: None (occurrence: None)
  Receive Date: 20111130
  Receipt Date: 20111128
  Transmission Date: 20120403
  Serious: Yes (Hospitalization, Other)
  Sender: FDA-Public Use
  Company Number: US-TEVA-311032USA

PATIENT
  Age: 34 Year
  Sex: Female

DRUGS (3)
  1. FLUOXETINE [Suspect]
  2. LAMOTRIGINE [Suspect]
  3. ETHANOL [Suspect]

REACTIONS (3)
  - NEUROTOXICITY [None]
  - ARRHYTHMIA [None]
  - INTENTIONAL OVERDOSE [None]
